FAERS Safety Report 23844861 (Version 2)
Quarter: 2025Q1

REPORT INFORMATION
  Report Type: Spontaneous
  Country: PT (occurrence: PT)
  Receive Date: 20240511
  Receipt Date: 20250318
  Transmission Date: 20250409
  Serious: Yes (Death, Hospitalization)
  Sender: AMGEN
  Company Number: PT-AMGEN-PRTSP2024091873

PATIENT
  Age: 16 Year
  Sex: Male

DRUGS (4)
  1. BLINATUMOMAB [Suspect]
     Active Substance: BLINATUMOMAB
     Indication: B-cell type acute leukaemia
     Route: 065
  2. PREDNISOLONE [Concomitant]
     Active Substance: PREDNISOLONE
  3. METHOTREXATE [Concomitant]
     Active Substance: METHOTREXATE
  4. CYTARABINE [Concomitant]
     Active Substance: CYTARABINE

REACTIONS (5)
  - Acute lymphocytic leukaemia recurrent [Fatal]
  - Hepatotoxicity [Unknown]
  - Haemophagocytic lymphohistiocytosis [Unknown]
  - Cytokine release syndrome [Unknown]
  - Acute kidney injury [Unknown]
